FAERS Safety Report 5871323-4 (Version None)
Quarter: 2008Q3

REPORT INFORMATION
  Report Type: 
  Country: None (occurrence: None)
  Receive Date: 20080904
  Receipt Date: 20080904
  Transmission Date: 20090109
  Serious: Yes (Other)
  Sender: FDA-Public Use
  Company Number: None

PATIENT
  Sex: Female
  Weight: 52.6173 kg

DRUGS (1)
  1. ARICEPT [Suspect]
     Indication: DEMENTIA ALZHEIMER'S TYPE
     Dosage: 10MG/5MG/6MG/5MG ONE TAB DAILY PO
     Route: 048
     Dates: start: 20080818, end: 20080821

REACTIONS (5)
  - ABDOMINAL PAIN [None]
  - FATIGUE [None]
  - MIDDLE INSOMNIA [None]
  - MUSCLE SPASMS [None]
  - NAUSEA [None]
